FAERS Safety Report 9234540 (Version 2)
Quarter: 2013Q4

REPORT INFORMATION
  Report Type: Spontaneous
  Country: FR (occurrence: FR)
  Receive Date: 20130416
  Receipt Date: 20131202
  Transmission Date: 20140711
  Serious: Yes (Hospitalization)
  Sender: FDA-Public Use
  Company Number: FR-GLAXOSMITHKLINE-B0883093A

PATIENT
  Age: 7 Year
  Sex: Male
  Weight: 22 kg

DRUGS (10)
  1. ZOVIRAX [Suspect]
     Indication: PYREXIA
     Dosage: 430MG THREE TIMES PER DAY
     Route: 042
     Dates: start: 20130122, end: 20130129
  2. EUPANTOL [Suspect]
     Indication: PROPHYLAXIS AGAINST GASTROINTESTINAL ULCER
     Dosage: 30MG PER DAY
     Route: 042
     Dates: start: 20130123, end: 20130131
  3. METHYLPREDNISOLONE [Suspect]
     Indication: CHEMOTHERAPY
     Route: 065
     Dates: start: 20121215, end: 20121227
  4. DOXORUBICINE [Suspect]
     Indication: PRODUCT USED FOR UNKNOWN INDICATION
     Dosage: 54MG CYCLIC
     Route: 042
     Dates: start: 20121223, end: 20130110
  5. VANCOMYCINE [Suspect]
     Indication: PYREXIA
     Dosage: 1400MG PER DAY
     Route: 042
     Dates: start: 20130120, end: 20130129
  6. FLAGYL [Suspect]
     Indication: PYREXIA
     Dosage: 200MG THREE TIMES PER DAY
     Route: 042
     Dates: start: 20130124, end: 20130128
  7. VINCRISTINE [Concomitant]
     Indication: CHEMOTHERAPY
  8. ENDOXAN [Concomitant]
     Indication: CHEMOTHERAPY
  9. HYDROCORTISONE HEMISUCCINATE [Concomitant]
     Indication: CHEMOTHERAPY
     Route: 037
  10. METHOTREXATE [Concomitant]
     Indication: CHEMOTHERAPY
     Route: 037

REACTIONS (3)
  - Oedematous pancreatitis [Recovered/Resolved]
  - Lipase increased [Recovered/Resolved]
  - Amylase increased [Recovered/Resolved]
